FAERS Safety Report 15473505 (Version 1)
Quarter: 2018Q4

REPORT INFORMATION
  Report Type: Spontaneous
  Country: FR (occurrence: FR)
  Receive Date: 20181008
  Receipt Date: 20181008
  Transmission Date: 20190205
  Serious: Yes (Disabling)
  Sender: FDA-Public Use
  Company Number: FR-ACORDA-ACO_154354_2018

PATIENT
  Age: 25 Year
  Sex: Female
  Weight: 75 kg

DRUGS (1)
  1. QUTENZA [Suspect]
     Active Substance: CAPSAICIN
     Indication: COMPLEX REGIONAL PAIN SYNDROME
     Dosage: UNK
     Route: 003
     Dates: start: 20180528

REACTIONS (4)
  - Condition aggravated [Unknown]
  - Application site oedema [Unknown]
  - Application site swelling [Unknown]
  - Neuralgia [Unknown]

NARRATIVE: CASE EVENT DATE: 20180529
